FAERS Safety Report 7878041-1 (Version None)
Quarter: 2011Q4

REPORT INFORMATION
  Report Type: 
  Country: None (occurrence: None)
  Receive Date: 20111101
  Receipt Date: 20111018
  Transmission Date: 20120403
  Serious: Yes (Hospitalization, Other)
  Sender: FDA-Public Use
  Company Number: FR-AMGEN-FRASP2011054474

PATIENT
  Age: 30 Year
  Sex: Female

DRUGS (5)
  1. CELEBREX [Concomitant]
     Indication: ARTHRITIS
     Dosage: TILL 2 CAPSULES (400 MG) DAILY, ONE DOSE FORM AS NEEDED
     Route: 048
  2. KLIPAL                             /00116401/ [Concomitant]
     Dosage: 500 MG SCORED TABLET, 6 DOSE FORM  DAILY, ONE DOSE FORM EVERY 4 HOURS
     Route: 048
  3. ENBREL [Suspect]
     Dosage: 50 MG, WEEKLY
     Route: 058
     Dates: start: 20100501, end: 20110607
  4. ENBREL [Suspect]
     Indication: PRODUCT USED FOR UNKNOWN INDICATION
     Dosage: 50 MG, WEEKLY
     Route: 058
     Dates: start: 20080501, end: 20090301
  5. OXYCODONE HCL [Concomitant]
     Dosage: 5 MG CAPSULE, ONE DOSE FORM AS NEEDED
     Route: 048

REACTIONS (3)
  - PERICARDITIS [None]
  - PNEUMONIA [None]
  - SPONDYLITIS [None]
